FAERS Safety Report 6452368-2 (Version None)
Quarter: 2009Q4

REPORT INFORMATION
  Report Type: 
  Country: None (occurrence: None)
  Receive Date: 20091123
  Receipt Date: 20091118
  Transmission Date: 20100525
  Serious: Yes (Hospitalization)
  Sender: FDA-Public Use
  Company Number: FR-MERCK-0911FRA00071

PATIENT
  Age: 57 Year
  Sex: Female

DRUGS (6)
  1. JANUVIA [Suspect]
     Indication: TYPE 2 DIABETES MELLITUS
     Route: 048
     Dates: start: 20090813, end: 20090830
  2. PANTOPRAZOLE SODIUM [Concomitant]
     Route: 048
  3. LEVOTHYROXINE SODIUM [Concomitant]
     Route: 048
  4. METFORMIN [Concomitant]
     Indication: TYPE 2 DIABETES MELLITUS
     Route: 048
     Dates: end: 20090812
  5. OLMESARTAN MEDOXOMIL [Concomitant]
     Route: 048
  6. ATORVASTATIN CALCIUM [Concomitant]
     Route: 048

REACTIONS (1)
  - RENAL FAILURE ACUTE [None]
